FAERS Safety Report 10070178 (Version 1)
Quarter: 2014Q2

REPORT INFORMATION
  Report Type: Spontaneous
  Country: JP (occurrence: None)
  Receive Date: 20140408
  Receipt Date: 20140408
  Transmission Date: 20141212
  Serious: Yes (Other)
  Sender: FDA-Public Use
  Company Number: ABR_01496_2014

PATIENT
  Age: 57 Year
  Sex: Female

DRUGS (1)
  1. GLIADEL [Suspect]
     Indication: MALIGNANT GLIOMA
     Dosage: 61.6 MG INTRACEREBRAL
     Dates: start: 20131226, end: 20131226

REACTIONS (5)
  - Brain oedema [None]
  - Convulsion [None]
  - Monoparesis [None]
  - Aphasia [None]
  - Dysgraphia [None]
